FAERS Safety Report 9403121 (Version 4)
Quarter: 2014Q4

REPORT INFORMATION
  Report Type: Spontaneous
  Country: US (occurrence: US)
  Receive Date: 20130716
  Receipt Date: 20141229
  Transmission Date: 20150529
  Serious: Yes (Death, Hospitalization, Other)
  Sender: FDA-Public Use
  Company Number: US-GLAXOSMITHKLINE-A1033598A

PATIENT
  Age: 74 Year
  Sex: Male

DRUGS (8)
  1. VOTRIENT [Suspect]
     Active Substance: PAZOPANIB HYDROCHLORIDE
     Indication: ILL-DEFINED DISORDER
     Dosage: 800 MG, QD
     Route: 048
     Dates: start: 20130516, end: 201411
  2. PREDNISONE. [Concomitant]
     Active Substance: PREDNISONE
  3. TAMSULOSIN [Concomitant]
     Active Substance: TAMSULOSIN
  4. METOPROLOL [Concomitant]
     Active Substance: METOPROLOL
  5. AMLODIPINE [Concomitant]
     Active Substance: AMLODIPINE BESYLATE
  6. ASPIRIN. [Concomitant]
     Active Substance: ASPIRIN
  7. FUROSEMIDE. [Concomitant]
     Active Substance: FUROSEMIDE
  8. POTASSIUM CHLORIDE. [Concomitant]
     Active Substance: POTASSIUM CHLORIDE

REACTIONS (5)
  - Constipation [Unknown]
  - Hospitalisation [Unknown]
  - Death [Fatal]
  - Vomiting [Unknown]
  - Diarrhoea [Unknown]

NARRATIVE: CASE EVENT DATE: 20130606
